FAERS Safety Report 13598829 (Version 1)
Quarter: 2017Q2

REPORT INFORMATION
  Report Type: Spontaneous
  Country: DE (occurrence: DE)
  Receive Date: 20170531
  Receipt Date: 20170531
  Transmission Date: 20170830
  Serious: Yes (Other)
  Sender: FDA-Public Use
  Company Number: DE-MERCK KGAA-2021428

PATIENT
  Age: 52 Year
  Sex: Female

DRUGS (8)
  1. NOVOTHYROX [Suspect]
     Active Substance: LEVOTHYROXINE SODIUM
     Indication: AUTOIMMUNE THYROIDITIS
  2. ESTRADIOL HEMIHYDRATE [Concomitant]
     Active Substance: ESTRADIOL HEMIHYDRATE
  3. NOVOTHYROX [Suspect]
     Active Substance: LEVOTHYROXINE SODIUM
  4. NOVOTHYROX [Suspect]
     Active Substance: LEVOTHYROXINE SODIUM
  5. NOVOTHYROX [Suspect]
     Active Substance: LEVOTHYROXINE SODIUM
     Dates: start: 20170522
  6. OPIPRAMOL [Concomitant]
     Active Substance: OPIPRAMOL
  7. PROGESTERON [Concomitant]
     Active Substance: PROGESTERONE
  8. NOVOTHYROX [Suspect]
     Active Substance: LEVOTHYROXINE SODIUM

REACTIONS (1)
  - Hyperthyroidism [Not Recovered/Not Resolved]
